FAERS Safety Report 4767050-7 (Version None)
Quarter: 2005Q3

REPORT INFORMATION
  Report Type: 
  Country: None (occurrence: None)
  Receive Date: 20050908
  Receipt Date: 20050826
  Transmission Date: 20060218
  Serious: Yes (Hospitalization)
  Sender: FDA-Public Use
  Company Number: 2005099010

PATIENT
  Age: 29 Year
  Sex: Female

DRUGS (12)
  1. HALCION [Suspect]
     Indication: INSOMNIA
     Dosage: 0.5 MG (0.5 MG, 1 IN 1 D), ORAL
     Route: 048
     Dates: start: 20050201, end: 20050706
  2. TETRAMIDE (MIANSERIN HYDROCHLORIDE) [Suspect]
     Indication: DEPRESSION
     Dosage: 150 MG (50 MG, 3 IN 1 D), ORAL
     Route: 048
     Dates: start: 20050614, end: 20050617
  3. TEGRETOL [Suspect]
     Indication: DEPRESSION
     Dosage: 200 MG (100 MG, 2 IN 1 D), ORAL
     Route: 048
     Dates: start: 20050201, end: 20050706
  4. HIRNAMIN (LEVOMEPROMAZINE) [Suspect]
     Indication: DEPRESSION
     Dosage: 150 MG (150 MG, 1 IN 1 D), ORAL
     Route: 048
     Dates: start: 20050201, end: 20050706
  5. DOGMATYL (SULPIRIDE) [Suspect]
     Indication: DEPRESSION
     Dosage: 300 MG (100 MG, 3 IN 1 D), ORAL
     Route: 048
     Dates: start: 20050201, end: 20050706
  6. TOLEDOMIN (MILNACIPRAN HYDROCHLORIDE) [Suspect]
     Indication: DEPRESSION
     Dosage: 150 MG (50 MG, 3 IN 1 D), ORAL
     Route: 048
     Dates: start: 20050201, end: 20050706
  7. DEPAKENE [Concomitant]
  8. ROHYPNOL (FLUNITRAZEPAM) [Concomitant]
  9. ANTI-PARKINSON AGENTS (ANTI-PARKINSON AGENTS) [Concomitant]
  10. PAXIL [Concomitant]
  11. AKINETON [Concomitant]
  12. VEGETAMIN (CHLORPROMAZINE HYDROCHLORIDE, PHENOBARBITAL, PROMETHAZINE H [Concomitant]

REACTIONS (7)
  - DRUG ERUPTION [None]
  - DYSPNOEA [None]
  - ERYTHEMA MULTIFORME [None]
  - FACE OEDEMA [None]
  - HEPATIC FUNCTION ABNORMAL [None]
  - PHARYNGOLARYNGEAL PAIN [None]
  - TOOTH INFECTION [None]
